FAERS Safety Report 7737809-2 (Version None)
Quarter: 2011Q3

REPORT INFORMATION
  Report Type: 
  Country: None (occurrence: None)
  Receive Date: 20110908
  Receipt Date: 20110829
  Transmission Date: 20111222
  Serious: Yes (Other)
  Sender: FDA-Public Use
  Company Number: PHHY2011BR77449

PATIENT
  Sex: Female

DRUGS (6)
  1. EXELON [Suspect]
     Dosage: 2 MG, UNK
     Route: 048
  2. METFFORMIN HYDROCHLORIDE [Suspect]
     Dosage: 500 MG, UNK
  3. LEXAPRO [Suspect]
     Dosage: 10 MG, UNK
  4. LIPIDIL [Suspect]
     Dosage: 200 MG, UNK
  5. LOSARTAN POTASSIUM [Suspect]
     Dosage: 50 MG, UNK
  6. MEMANTINE HYDROCHLORIDE [Suspect]
     Dosage: 10 MG, UNK

REACTIONS (6)
  - ULCER [None]
  - FAECES DISCOLOURED [None]
  - PRURITUS [None]
  - DEHYDRATION [None]
  - HAEMORRHAGE [None]
  - HAEMATEMESIS [None]
